FAERS Safety Report 25646501 (Version 1)
Quarter: 2025Q3

REPORT INFORMATION
  Report Type: Report from Study
  Country: US (occurrence: US)
  Receive Date: 20250805
  Receipt Date: 20250805
  Transmission Date: 20251020
  Serious: No
  Sender: MALLINCKRODT
  Company Number: US-MALLINCKRODT-MNK202501734

PATIENT
  Age: 67 Year
  Sex: Female

DRUGS (1)
  1. CORTICOTROPIN [Suspect]
     Active Substance: CORTICOTROPIN
     Indication: Keratitis
     Route: 058
     Dates: start: 20250318

REACTIONS (4)
  - Alopecia [Recovering/Resolving]
  - Eye pain [Recovering/Resolving]
  - Localised infection [Unknown]
  - Peripheral swelling [Unknown]

NARRATIVE: CASE EVENT DATE: 20250301
